FAERS Safety Report 7497410-5 (Version None)
Quarter: 2011Q2

REPORT INFORMATION
  Report Type: 
  Country: None (occurrence: None)
  Receive Date: 20110523
  Receipt Date: 20110518
  Transmission Date: 20111010
  Serious: Yes (Hospitalization, Other)
  Sender: FDA-Public Use
  Company Number: CHPA2011US05739

PATIENT
  Age: 40 Year
  Sex: Female
  Weight: 56.689 kg

DRUGS (2)
  1. NICOTINE [Suspect]
     Indication: SMOKING CESSATION THERAPY
     Dosage: 21 MG, QD
     Route: 062
     Dates: start: 20110411, end: 20110419
  2. SEROQUEL [Concomitant]
     Indication: ANXIETY

REACTIONS (5)
  - CARDIAC DISORDER [None]
  - HEADACHE [None]
  - URTICARIA [None]
  - CHEST PAIN [None]
  - PRURITUS [None]
